FAERS Safety Report 15403491 (Version 1)
Quarter: 2018Q3

REPORT INFORMATION
  Report Type: Spontaneous
  Country: US (occurrence: US)
  Receive Date: 20180919
  Receipt Date: 20180919
  Transmission Date: 20181010
  Serious: No
  Sender: FDA-Public Use
  Company Number: US-PFIZER INC-2018376797

PATIENT
  Sex: Female

DRUGS (1)
  1. GABAPENTIN. [Suspect]
     Active Substance: GABAPENTIN
     Dosage: UNK, 2X/DAY DAY (SHE TOOK 600MG AT NIGHT AND 300MG DURING THE DAY)

REACTIONS (2)
  - Feeling abnormal [Unknown]
  - Stupor [Unknown]
